FAERS Safety Report 8869256 (Version 1)
Quarter: 2012Q4

REPORT INFORMATION
  Report Type: Spontaneous
  Country: US (occurrence: None)
  Receive Date: 20121024
  Receipt Date: 20121024
  Transmission Date: 20130627
  Serious: Yes (Hospitalization, Other)
  Sender: FDA-Public Use
  Company Number: AUR-APL-2012-04494

PATIENT
  Age: 12 Year
  Sex: Female

DRUGS (3)
  1. RISPERIDONE [Suspect]
     Indication: BEHAVIOURAL DISORDER
     Dosage: (2 mg, 1 D) , Unknown
  2. TRIHEXPHENYDYL [Suspect]
     Dosage: (4 mg, 1 D), Unknown
  3. RISPERIDONE [Suspect]

REACTIONS (6)
  - Torticollis [None]
  - Oromandibular dystonia [None]
  - Mutism [None]
  - Hypophagia [None]
  - Dystonia [None]
  - Oromandibular dystonia [None]
